FAERS Safety Report 6890683-9 (Version None)
Quarter: 2010Q3

REPORT INFORMATION
  Report Type: 
  Country: None (occurrence: None)
  Receive Date: 20100731
  Receipt Date: 20090211
  Transmission Date: 20110219
  Serious: No
  Sender: FDA-Public Use
  Company Number: US-PFIZER INC-2009168592

PATIENT
  Sex: Male
  Weight: 90.703 kg

DRUGS (10)
  1. LIPITOR [Suspect]
     Indication: BLOOD CHOLESTEROL INCREASED
     Dosage: 20 MG, 1X/DAY
     Route: 048
     Dates: start: 20080101
  2. KALETRA [Suspect]
     Indication: HIV INFECTION
     Dosage: 2 TABLET, BID
     Route: 048
     Dates: start: 20060101
  3. METFORMIN [Concomitant]
     Indication: DIABETES MELLITUS
     Dosage: 1000 MG, 2X/DAY
     Route: 048
  4. ABACAVIR SULFATE/LAMIVUDINE [Concomitant]
     Indication: HIV INFECTION
     Dosage: [ABACAVIR SULFATE 600 MG]/[LAMIVUDINE 300 MG] DAILY
     Route: 048
  5. TENOFOVIR [Concomitant]
     Indication: HIV INFECTION
     Dosage: 300 MG, 1X/DAY
     Route: 048
  6. ACICLOVIR SODIUM [Concomitant]
     Dosage: 400 MG, 1X/DAY
     Route: 048
  7. AMLODIPINE MALEATE [Concomitant]
     Indication: HYPERTENSION
     Dosage: 10 MG, 1X/DAY
     Route: 048
  8. ATENOLOL [Concomitant]
     Indication: HYPERTENSION
     Dosage: 500 MG, 2X/DAY
     Route: 048
  9. FLUOXETINE [Concomitant]
     Indication: ANXIETY
     Dosage: 20 MG, 1X/DAY
     Route: 048
  10. LISINOPRIL [Concomitant]
     Indication: HYPERTENSION
     Dosage: 20 MG, 1X/DAY
     Route: 048

REACTIONS (2)
  - DIARRHOEA [None]
  - MEDICATION RESIDUE [None]
